FAERS Safety Report 4339297-5 (Version None)
Quarter: 2004Q2

REPORT INFORMATION
  Report Type: 
  Country: None (occurrence: None)
  Receive Date: 20040412
  Receipt Date: 20040322
  Transmission Date: 20050107
  Serious: Yes (Hospitalization)
  Sender: FDA-Public Use
  Company Number: B0327668A   FR

PATIENT
  Age: 51 Year
  Sex: Female

DRUGS (16)
  1. AZATHIOPRINE [Suspect]
     Indication: POLYARTERITIS NODOSA
     Dosage: 150 MG
     Route: 048
     Dates: start: 20040205, end: 20040220
  2. PREDNISONE [Suspect]
     Dosage: 15 MG
     Route: 048
  3. ELECTRIPTAN HYDROBROMIDE [Suspect]
     Dosage: 80 MG
     Route: 048
     Dates: start: 20040216
  4. MORPHINE SULFATE [Suspect]
     Dosage: 120 MG
     Route: 048
     Dates: end: 20040225
  5. OXYBUTYNIN HYDROCHLORIDE [Concomitant]
  6. ESOMEPRAZOLE [Concomitant]
  7. ACETAMINOPHEN [Concomitant]
  8. CITALOPRAM HYDROBROMIDE [Concomitant]
  9. LORMETAZEPAM [Concomitant]
  10. ALENDRONATE SODIUM [Concomitant]
  11. TIANEPTINE SODIUM [Concomitant]
  12. MORPHINE SULFATE [Concomitant]
  13. MORPHINE [Concomitant]
  14. SALBUTAMOL SULPHATE [Concomitant]
  15. FLUTICASONE+SALMETEROL [Concomitant]
  16. IPRATROPIUM BROMIDE [Concomitant]

REACTIONS (11)
  - COUGH [None]
  - HEADACHE [None]
  - INTRACRANIAL PRESSURE INCREASED [None]
  - LUMBAR PUNCTURE ABNORMAL [None]
  - MIGRAINE [None]
  - NAUSEA [None]
  - PHONOPHOBIA [None]
  - PHOTOPHOBIA [None]
  - PYREXIA [None]
  - SELF-MEDICATION [None]
  - VOMITING [None]
